FAERS Safety Report 9420605 (Version 1)
Quarter: 2013Q3

REPORT INFORMATION
  Report Type: Spontaneous
  Country: US (occurrence: US)
  Receive Date: 20130725
  Receipt Date: 20130725
  Transmission Date: 20140515
  Serious: No
  Sender: FDA-Public Use
  Company Number: US-ABBOTT-13P-163-1090781-00

PATIENT
  Age: 81 Year
  Sex: Male
  Weight: 75.82 kg

DRUGS (6)
  1. SYNTHROID [Suspect]
     Indication: HYPOTHYROIDISM
  2. CRESTOR [Concomitant]
     Indication: BLOOD CHOLESTEROL INCREASED
  3. HYDROCHLOROTHIAZIDE [Concomitant]
     Indication: HYPERTENSION
  4. NORVASC [Concomitant]
     Indication: HYPERTENSION
  5. POTASSIUM CHLORIDE [Concomitant]
     Indication: HYPERTENSION
  6. COREG [Concomitant]
     Indication: HYPERTENSION

REACTIONS (2)
  - Blood thyroid stimulating hormone increased [Recovered/Resolved]
  - Pain in extremity [Recovered/Resolved]
